FAERS Safety Report 6975413-4 (Version None)
Quarter: 2010Q3

REPORT INFORMATION
  Report Type: 
  Country: None (occurrence: None)
  Receive Date: 20100910
  Receipt Date: 20090319
  Transmission Date: 20110219
  Serious: No
  Sender: FDA-Public Use
  Company Number: US-WYE-H08652509

PATIENT
  Sex: Male
  Weight: 108.05 kg

DRUGS (10)
  1. PRISTIQ [Suspect]
     Indication: DEPRESSION
     Route: 048
     Dates: start: 20090101, end: 20090318
  2. PRISTIQ [Suspect]
     Route: 048
     Dates: start: 20090319
  3. TRAZODONE HCL [Concomitant]
  4. DICYCLOMINE HYDROCHLORIDE [Concomitant]
  5. SIMVASTATIN [Concomitant]
  6. OMEPRAZOLE [Concomitant]
  7. METFORMIN [Concomitant]
  8. NICOTINIC ACID [Concomitant]
  9. XANAX [Concomitant]
  10. METHIMAZOLE [Concomitant]

REACTIONS (1)
  - HYPERHIDROSIS [None]
